FAERS Safety Report 9294095 (Version 1)
Quarter: 2013Q1

REPORT INFORMATION
  Report Type: Spontaneous
  Country: US (occurrence: None)
  Receive Date: 20121218
  Receipt Date: 20121218
  Transmission Date: 20140127
  Serious: Yes (Other)
  Sender: FDA-Public Use
  Company Number: PHEH2011US009075

PATIENT
  Age: 69 Year
  Sex: Female

DRUGS (2)
  1. FEMARA [Suspect]
  2. LETROZOLE (LETROZOLE) UNKNOWN [Concomitant]

REACTIONS (4)
  - Arthritis [None]
  - Pain in extremity [None]
  - Arthralgia [None]
  - Myalgia [None]
